FAERS Safety Report 6241470-6 (Version None)
Quarter: 2009Q2

REPORT INFORMATION
  Report Type: 
  Country: None (occurrence: None)
  Receive Date: 20090623
  Receipt Date: 20060211
  Transmission Date: 20091009
  Serious: Yes (Death, Hospitalization)
  Sender: FDA-Public Use
  Company Number: MX-ROCHE-345484

PATIENT
  Sex: Male

DRUGS (13)
  1. DACLIZUMAB [Suspect]
     Route: 042
     Dates: start: 20030324, end: 20030324
  2. DACLIZUMAB [Suspect]
     Route: 042
     Dates: start: 20030408, end: 20030519
  3. MYCOPHENOLATE MOFETIL [Suspect]
     Route: 048
     Dates: start: 20030324, end: 20030821
  4. MYCOPHENOLATE MOFETIL [Suspect]
     Route: 048
     Dates: start: 20030822
  5. SIROLIMUS [Suspect]
     Route: 048
     Dates: start: 20030325
  6. PREDNISONE [Suspect]
     Route: 048
     Dates: start: 20030325
  7. METHYLPREDNISOLONE [Suspect]
     Route: 048
     Dates: start: 20030324, end: 20030325
  8. SULFAMETHOXAZOLE [Concomitant]
     Route: 048
     Dates: start: 20030326
  9. NIFEDIPINE [Concomitant]
     Route: 048
     Dates: start: 20030328
  10. ACYCLOVIR [Concomitant]
     Route: 048
     Dates: start: 20030328, end: 20030416
  11. CALCIUM CARBONATE [Concomitant]
     Route: 048
     Dates: start: 20030326
  12. METOPROLOL SUCCINATE [Concomitant]
     Route: 048
     Dates: start: 20030618
  13. PRAVASTATIN [Concomitant]
     Route: 048
     Dates: start: 20030328

REACTIONS (3)
  - DIARRHOEA [None]
  - PYREXIA [None]
  - SYSTEMIC CANDIDA [None]
